FAERS Safety Report 10028238 (Version 1)
Quarter: 2014Q1

REPORT INFORMATION
  Report Type: Spontaneous
  Country: US (occurrence: US)
  Receive Date: 20140321
  Receipt Date: 20140321
  Transmission Date: 20141002
  Serious: Yes (Other)
  Sender: FDA-Public Use
  Company Number: US-ACTAVIS-2014-05116

PATIENT
  Age: 62 Year
  Sex: Female

DRUGS (4)
  1. LEVETIRACETAM (WATSON LABORATORIES) [Suspect]
     Indication: CONVULSION PROPHYLAXIS
     Dosage: 500 MG, BID
     Route: 065
  2. MEROPENEM [Concomitant]
     Indication: WOUND INFECTION
     Dosage: 2000 MG, Q8H
     Route: 042
  3. LEVOTHYROXINE [Concomitant]
     Indication: PRODUCT USED FOR UNKNOWN INDICATION
     Dosage: UNK
     Route: 065
  4. RANITIDINE [Concomitant]
     Indication: PRODUCT USED FOR UNKNOWN INDICATION
     Dosage: UNK
     Route: 065

REACTIONS (1)
  - Hepatic enzyme increased [Recovered/Resolved]
